FAERS Safety Report 7490033-3 (Version None)
Quarter: 2011Q2

REPORT INFORMATION
  Report Type: 
  Country: None (occurrence: None)
  Receive Date: 20110517
  Receipt Date: 20110517
  Transmission Date: 20111010
  Serious: Yes (Life-Threatening, Other)
  Sender: FDA-Public Use
  Company Number: None

PATIENT
  Age: 34 Year
  Sex: Female
  Weight: 90.7194 kg

DRUGS (1)
  1. SEROQUEL [Suspect]
     Indication: BIPOLAR DISORDER
     Dosage: 300MG 200MG-750MG 1/DAY PO
     Route: 048
     Dates: start: 20110509, end: 20110512

REACTIONS (15)
  - COUGH [None]
  - PAIN [None]
  - CONFUSIONAL STATE [None]
  - HEART RATE INCREASED [None]
  - WHITE BLOOD CELL COUNT DECREASED [None]
  - FATIGUE [None]
  - THIRST [None]
  - POLLAKIURIA [None]
  - ASTHENIA [None]
  - THYROID DISORDER [None]
  - HUNGER [None]
  - BLOOD PRESSURE INCREASED [None]
  - BLOOD CHOLESTEROL INCREASED [None]
  - BLOOD TRIGLYCERIDES INCREASED [None]
  - CHEST DISCOMFORT [None]
